FAERS Safety Report 7985047-0 (Version None)
Quarter: 2011Q4

REPORT INFORMATION
  Report Type: 
  Country: None (occurrence: None)
  Receive Date: 20111216
  Receipt Date: 20111123
  Transmission Date: 20120403
  Serious: No
  Sender: FDA-Public Use
  Company Number: US-ALLERGAN-1115419US

PATIENT
  Sex: Female

DRUGS (3)
  1. DOXYCYCLINE [Concomitant]
     Indication: ACNE
     Dosage: 50 MG, UNK
     Route: 048
     Dates: start: 20110301
  2. LATISSE [Suspect]
     Indication: EYELASH THICKENING
     Dosage: 2 GTT, QHS
     Route: 061
     Dates: start: 20110101
  3. LATISSE [Suspect]
     Indication: HYPOTRICHOSIS
     Dosage: 2 GTT, QHS
     Route: 061
     Dates: start: 20110101

REACTIONS (1)
  - DRUG INEFFECTIVE [None]
